FAERS Safety Report 24119105 (Version 1)
Quarter: 2024Q3

REPORT INFORMATION
  Report Type: Spontaneous
  Country: JP (occurrence: JP)
  Receive Date: 20240722
  Receipt Date: 20240722
  Transmission Date: 20241016
  Serious: Yes (Death, Other)
  Sender: BRISTOL MYERS SQUIBB
  Company Number: JP-ONO-2024JP014931

PATIENT
  Age: 51 Year
  Sex: Male

DRUGS (1)
  1. OPDIVO [Suspect]
     Active Substance: NIVOLUMAB
     Indication: Head and neck cancer
     Dosage: UNK
     Route: 041

REACTIONS (3)
  - Myelodysplastic syndrome [Unknown]
  - Transformation to acute myeloid leukaemia [Unknown]
  - Death [Fatal]
